FAERS Safety Report 13691653 (Version 5)
Quarter: 2017Q4

REPORT INFORMATION
  Report Type: Report from Study
  Country: US (occurrence: US)
  Receive Date: 20170626
  Receipt Date: 20171215
  Transmission Date: 20180320
  Serious: Yes (Death, Hospitalization)
  Sender: FDA-Public Use
  Company Number: US-ACTELION-A-NJ2017-153479

PATIENT
  Age: 30 Year
  Sex: Female
  Weight: 71.2 kg

DRUGS (7)
  1. LETAIRIS [Concomitant]
     Active Substance: AMBRISENTAN
     Dosage: 10 MG, QD
  2. VELETRI [Suspect]
     Active Substance: EPOPROSTENOL
     Dosage: 15 NG/KG, PER MIN
     Route: 042
  3. ADCIRCA [Concomitant]
     Active Substance: TADALAFIL
  4. NIFEDIPINE. [Concomitant]
     Active Substance: NIFEDIPINE
  5. VELETRI [Suspect]
     Active Substance: EPOPROSTENOL
     Indication: PULMONARY ARTERIAL HYPERTENSION
     Dosage: 14 NG/KG, PER MIN
     Route: 042
  6. XARELTO [Concomitant]
     Active Substance: RIVAROXABAN
  7. VELETRI [Suspect]
     Active Substance: EPOPROSTENOL
     Dosage: 12 NG/KG, PER MIN
     Route: 042
     Dates: start: 20170428

REACTIONS (18)
  - Catheter site erythema [Unknown]
  - Pulmonary arterial hypertension [Fatal]
  - Syncope [Unknown]
  - Catheter site vesicles [Unknown]
  - Nausea [Unknown]
  - Headache [Unknown]
  - Catheter site pain [Unknown]
  - Dermatitis contact [Unknown]
  - Catheter site pruritus [Unknown]
  - Dizziness [Unknown]
  - Pain in jaw [Unknown]
  - Device related infection [Unknown]
  - Dyspnoea [Recovering/Resolving]
  - Disease progression [Fatal]
  - Asthenia [Unknown]
  - Catheter site discharge [Unknown]
  - Vomiting [Recovered/Resolved]
  - Diarrhoea [Unknown]

NARRATIVE: CASE EVENT DATE: 20170429
